FAERS Safety Report 10802774 (Version 1)
Quarter: 2015Q1

REPORT INFORMATION
  Report Type: Spontaneous
  Country: FR (occurrence: FR)
  Receive Date: 20150217
  Receipt Date: 20150217
  Transmission Date: 20150721
  Serious: Yes (Hospitalization)
  Sender: FDA-Public Use
  Company Number: FR-SA-2015SA017718

PATIENT
  Age: 69 Year
  Sex: Male

DRUGS (22)
  1. PARACETAMOL [Suspect]
     Active Substance: ACETAMINOPHEN
     Indication: PAIN
     Route: 048
     Dates: start: 201412, end: 20150108
  2. LYRICA [Suspect]
     Active Substance: PREGABALIN
     Indication: DIABETIC NEUROPATHY
     Route: 048
     Dates: start: 201412, end: 20150114
  3. TRIATEC [Concomitant]
     Active Substance: RAMIPRIL
     Dates: start: 2007, end: 20150114
  4. BISOPROLOL/HYDROCHLOROTHIAZIDE [Concomitant]
  5. COTAREG [Concomitant]
     Active Substance: HYDROCHLOROTHIAZIDE\VALSARTAN
     Dates: end: 20150114
  6. LANTUS SOLOSTAR [Suspect]
     Active Substance: INSULIN GLARGINE
     Indication: TYPE 2 DIABETES MELLITUS
     Route: 058
     Dates: start: 20150116
  7. SMECTA [Suspect]
     Active Substance: MONTMORILLONITE
     Indication: DIARRHOEA
     Route: 065
     Dates: start: 201412
  8. PLAVIX [Concomitant]
     Active Substance: CLOPIDOGREL BISULFATE
     Dates: start: 2007
  9. COTAREG [Concomitant]
     Active Substance: HYDROCHLOROTHIAZIDE\VALSARTAN
  10. SOLOSTAR [Concomitant]
     Active Substance: DEVICE
     Dates: start: 201412, end: 20150114
  11. LANTUS SOLOSTAR [Suspect]
     Active Substance: INSULIN GLARGINE
     Indication: TYPE 2 DIABETES MELLITUS
     Route: 058
     Dates: start: 201412, end: 20150114
  12. MOPRAL [Suspect]
     Active Substance: OMEPRAZOLE SODIUM
     Route: 048
     Dates: start: 201412, end: 20150114
  13. LYRICA [Suspect]
     Active Substance: PREGABALIN
     Indication: DIABETIC NEUROPATHY
     Dates: start: 20150116
  14. TRIATEC [Concomitant]
     Active Substance: RAMIPRIL
  15. LAMICTAL [Concomitant]
     Active Substance: LAMOTRIGINE
     Dates: start: 2008
  16. VOLTARENE [Suspect]
     Active Substance: DICLOFENAC SODIUM
     Route: 048
     Dates: start: 201412
  17. AMLOR [Concomitant]
     Active Substance: AMLODIPINE BESYLATE
     Dates: start: 2008
  18. BISOPROLOL/HYDROCHLOROTHIAZIDE [Concomitant]
     Dosage: STRENGTH: 5/6.25 DOSE:1 UNIT(S)
     Dates: start: 2008, end: 20150114
  19. NOVONORM [Concomitant]
     Active Substance: REPAGLINIDE
     Dates: start: 2007
  20. DIFFU K [Concomitant]
     Active Substance: POTASSIUM CHLORIDE
  21. TAHOR [Concomitant]
     Active Substance: ATORVASTATIN CALCIUM
     Dates: start: 2008
  22. ESIDREX [Concomitant]
     Active Substance: HYDROCHLOROTHIAZIDE

REACTIONS (1)
  - Skin necrosis [Recovering/Resolving]

NARRATIVE: CASE EVENT DATE: 20150105
